FAERS Safety Report 19800394 (Version 2)
Quarter: 2021Q4

REPORT INFORMATION
  Report Type: Report from Study
  Country: US (occurrence: US)
  Receive Date: 20210907
  Receipt Date: 20211118
  Transmission Date: 20220303
  Serious: Yes (Hospitalization)
  Sender: FDA-Public Use
  Company Number: US-EXELIXIS-CABO-21043771

PATIENT
  Age: 62 Year
  Sex: Male

DRUGS (1)
  1. CABOMETYX [Suspect]
     Active Substance: CABOZANTINIB S-MALATE
     Indication: Renal cancer
     Dosage: 40 MG, QD
     Route: 048
     Dates: end: 20211027

REACTIONS (7)
  - Blood urine present [Unknown]
  - Oral disorder [Unknown]
  - Weight increased [Unknown]
  - Increased appetite [Unknown]
  - Blood pressure systolic increased [Unknown]
  - Dry skin [Unknown]
  - Muscle spasms [Recovering/Resolving]

NARRATIVE: CASE EVENT DATE: 20210824
